FAERS Safety Report 11610335 (Version 1)
Quarter: 2015Q4

REPORT INFORMATION
  Report Type: Spontaneous
  Country: FR (occurrence: FR)
  Receive Date: 20151008
  Receipt Date: 20151008
  Transmission Date: 20160304
  Serious: Yes (Hospitalization, Disabling, Other)
  Sender: FDA-Public Use
  Company Number: FR-BRISTOL-MYERS SQUIBB COMPANY-BMS-2015-064296

PATIENT
  Age: 76 Year
  Sex: Female

DRUGS (5)
  1. YERVOY [Suspect]
     Active Substance: IPILIMUMAB
     Indication: MALIGNANT MELANOMA
     Dosage: 225 MG, Q3WK
     Route: 042
     Dates: start: 20150320, end: 20150512
  2. LOGIMAX [Concomitant]
     Active Substance: FELODIPINE\METOPROLOL SUCCINATE
     Indication: PRODUCT USED FOR UNKNOWN INDICATION
     Route: 065
  3. DEROXAT [Concomitant]
     Active Substance: PAROXETINE HYDROCHLORIDE
     Indication: PRODUCT USED FOR UNKNOWN INDICATION
     Route: 065
  4. DAFALGAN [Concomitant]
     Active Substance: ACETAMINOPHEN
     Indication: PRODUCT USED FOR UNKNOWN INDICATION
     Route: 065
  5. APROVEL [Concomitant]
     Active Substance: IRBESARTAN
     Indication: PRODUCT USED FOR UNKNOWN INDICATION
     Route: 065

REACTIONS (7)
  - Leukoencephalopathy [Recovering/Resolving]
  - Encephalitis [Recovering/Resolving]
  - Extrapyramidal disorder [Recovering/Resolving]
  - Cerebral ischaemia [Recovering/Resolving]
  - Meningitis [Recovering/Resolving]
  - Cystitis [Unknown]
  - Metastases to meninges [Recovering/Resolving]

NARRATIVE: CASE EVENT DATE: 20150506
